FAERS Safety Report 5893026-2 (Version None)
Quarter: 2008Q3

REPORT INFORMATION
  Report Type: 
  Country: None (occurrence: None)
  Receive Date: 20080923
  Receipt Date: 20071030
  Transmission Date: 20090109
  Serious: No
  Sender: FDA-Public Use
  Company Number: US-ASTRAZENECA-2007UW02043

PATIENT
  Age: 667 Month
  Sex: Female
  Weight: 118.2 kg

DRUGS (3)
  1. SEROQUEL [Suspect]
     Indication: POST-TRAUMATIC STRESS DISORDER
     Dosage: 100 MG TO 300 MG
     Route: 048
     Dates: start: 20010301
  2. SEROQUEL [Suspect]
     Indication: DEPRESSION
     Dosage: 100 MG TO 300 MG
     Route: 048
     Dates: start: 20010301
  3. DEPAKOTE [Concomitant]
     Dates: start: 19991101, end: 20030901

REACTIONS (6)
  - DIABETES MELLITUS [None]
  - DYSPNOEA [None]
  - INSOMNIA [None]
  - PAIN [None]
  - SINUS DISORDER [None]
  - WEIGHT INCREASED [None]
